FAERS Safety Report 16271643 (Version 2)
Quarter: 2020Q1

REPORT INFORMATION
  Report Type: Spontaneous
  Country: US (occurrence: US)
  Receive Date: 20190503
  Receipt Date: 20200304
  Transmission Date: 20200409
  Serious: No
  Sender: FDA-Public Use
  Company Number: US-ASTRAZENECA-2019SE63413

PATIENT
  Age: 27 Year
  Sex: Male

DRUGS (5)
  1. SEROQUEL [Suspect]
     Active Substance: QUETIAPINE FUMARATE
     Indication: SLEEP DISORDER
     Route: 048
     Dates: start: 201904
  2. SEROQUEL [Suspect]
     Active Substance: QUETIAPINE FUMARATE
     Indication: SLEEP DISORDER
     Route: 048
     Dates: start: 20181101
  3. EFFEXOR [Concomitant]
     Active Substance: VENLAFAXINE HYDROCHLORIDE
  4. SEROQUEL [Suspect]
     Active Substance: QUETIAPINE FUMARATE
     Indication: SLEEP DISORDER
     Route: 048
  5. LEXAPRO GENERIC [Concomitant]
     Active Substance: ESCITALOPRAM OXALATE
     Indication: ANXIETY DISORDER

REACTIONS (7)
  - Eczema [Not Recovered/Not Resolved]
  - Off label use [Not Recovered/Not Resolved]
  - Skin exfoliation [Unknown]
  - Tinea infection [Not Recovered/Not Resolved]
  - Anxiety [Unknown]
  - Lyme disease [Not Recovered/Not Resolved]
  - Skin haemorrhage [Unknown]

NARRATIVE: CASE EVENT DATE: 20190108
